FAERS Safety Report 25362608 (Version 1)
Quarter: 2025Q2

REPORT INFORMATION
  Report Type: Spontaneous
  Country: US (occurrence: US)
  Receive Date: 20250527
  Receipt Date: 20250527
  Transmission Date: 20250717
  Serious: No
  Sender: ELI LILLY AND COMPANY
  Company Number: US-ELI_LILLY_AND_COMPANY-US202505020032

PATIENT
  Age: 63 Year
  Sex: Female

DRUGS (1)
  1. FORTEO [Suspect]
     Active Substance: TERIPARATIDE
     Indication: Product used for unknown indication
     Dosage: UNK UNK, DAILY(IN THE MORNING AFTER BREAKFAST)
     Route: 065

REACTIONS (4)
  - Palpitations [Unknown]
  - Condition aggravated [Unknown]
  - Feeling abnormal [Unknown]
  - Nausea [Unknown]
